FAERS Safety Report 4477264-1 (Version None)
Quarter: 2004Q4

REPORT INFORMATION
  Report Type: 
  Country: None (occurrence: None)
  Receive Date: 20041018
  Receipt Date: 20031017
  Transmission Date: 20050328
  Serious: No
  Sender: FDA-Public Use
  Company Number: US-GLAXOSMITHKLINE-A0430582A

PATIENT
  Age: 16 Month
  Sex: Male
  Weight: 10.9 kg

DRUGS (2)
  1. CEFUROXIME AXETIL [Suspect]
     Dosage: 4ML TWICE PER DAY
     Route: 048
     Dates: start: 20031015
  2. TYLENOL [Concomitant]

REACTIONS (2)
  - INSOMNIA [None]
  - SCREAMING [None]
